FAERS Safety Report 9862309 (Version 1)
Quarter: 2014Q1

REPORT INFORMATION
  Report Type: Spontaneous
  Country: US (occurrence: None)
  Receive Date: 20140131
  Receipt Date: 20140131
  Transmission Date: 20141002
  Serious: Yes (Hospitalization)
  Sender: FDA-Public Use
  Company Number: None

PATIENT
  Age: 55 Year
  Sex: Female
  Weight: 82.37 kg

DRUGS (12)
  1. BOTOX [Suspect]
     Indication: MIGRAINE
     Route: 030
     Dates: start: 20130319, end: 20130130
  2. UNSPECIFIED [Suspect]
     Route: 048
     Dates: start: 20130319, end: 20130110
  3. TUMS [Concomitant]
  4. TAMOXIFEN [Concomitant]
  5. KLONOPIN [Concomitant]
  6. FROVA [Concomitant]
  7. FISH OIL [Concomitant]
  8. CALTRATE [Concomitant]
  9. MGOXIOE [Concomitant]
  10. BAUPZ [Concomitant]
  11. VITAMIN D [Concomitant]
  12. MOM [Concomitant]

REACTIONS (2)
  - Haemorrhoids [None]
  - Rectal prolapse [None]
